FAERS Safety Report 9843988 (Version 1)
Quarter: 2013Q4

REPORT INFORMATION
  Report Type: Spontaneous
  Country: US (occurrence: None)
  Receive Date: 20131223
  Receipt Date: 20131223
  Transmission Date: 20140711
  Serious: No
  Sender: FDA-Public Use
  Company Number: 1000050608

PATIENT
  Sex: Male

DRUGS (3)
  1. LINZESS (LINACLOTIDE) (145 MICROGRAM, CAPSULES) [Suspect]
     Indication: IRRITABLE BOWEL SYNDROME
     Dosage: 145 MCG, 1 IN 1 D, ORAL
     Route: 048
     Dates: start: 201310, end: 201310
  2. AMOXICILLIN (AMOXICILLIN) [Suspect]
     Dosage: 250 MCG ( 125MCG, 2 IN 1 D) ORAL
     Route: 048
  3. TORASEMIDE (TORASEMIDE) (TORASEMIDE) [Concomitant]

REACTIONS (2)
  - Diarrhoea [None]
  - Headache [None]
